FAERS Safety Report 9054599 (Version 1)
Quarter: 2013Q1

REPORT INFORMATION
  Report Type: Spontaneous
  Country: US (occurrence: US)
  Receive Date: 20130208
  Receipt Date: 20130208
  Transmission Date: 20140127
  Serious: Yes (Other)
  Sender: FDA-Public Use
  Company Number: US-US-EMD SERONO, INC.-7093729

PATIENT
  Sex: Male

DRUGS (2)
  1. REBIF [Suspect]
     Indication: PRODUCT USED FOR UNKNOWN INDICATION
     Route: 058
     Dates: start: 20100202
  2. REBIF [Suspect]
     Route: 058
     Dates: start: 201301

REACTIONS (3)
  - Amnesia [Unknown]
  - Mobility decreased [Not Recovered/Not Resolved]
  - Cognitive disorder [Unknown]
